FAERS Safety Report 9346799 (Version 1)
Quarter: 2013Q2

REPORT INFORMATION
  Report Type: Report from Study
  Country: US (occurrence: US)
  Receive Date: 20130613
  Receipt Date: 20130613
  Transmission Date: 20140414
  Serious: Yes (Hospitalization)
  Sender: FDA-Public Use
  Company Number: US-ROCHE-1236348

PATIENT
  Age: 55 Year
  Sex: Female

DRUGS (3)
  1. PEGASYS [Suspect]
     Indication: HEPATITIS
     Route: 058
     Dates: start: 20130321, end: 20130514
  2. RIBAVIRIN [Suspect]
     Indication: HEPATITIS
     Dosage: 400MG TAB PO IN AM AND 600MG TAB PO IN PM
     Route: 048
     Dates: start: 20130321, end: 20130514
  3. INCIVEK [Suspect]
     Indication: HEPATITIS
     Dosage: 375MG- 2 TABS 3X A DAY
     Route: 048
     Dates: start: 20130321, end: 20130514

REACTIONS (5)
  - Blood count abnormal [Not Recovered/Not Resolved]
  - Rash pruritic [Recovering/Resolving]
  - Dry skin [Not Recovered/Not Resolved]
  - Skin disorder [Not Recovered/Not Resolved]
  - Pruritus [Not Recovered/Not Resolved]
